FAERS Safety Report 4315376-3 (Version None)
Quarter: 2004Q1

REPORT INFORMATION
  Report Type: 
  Country: None (occurrence: None)
  Receive Date: 20040311
  Receipt Date: 20031009
  Transmission Date: 20041129
  Serious: Yes (Other)
  Sender: FDA-Public Use
  Company Number: PHNU2003DE03687

PATIENT
  Sex: Male
  Weight: 103 kg

DRUGS (4)
  1. DIOVAN [Suspect]
     Indication: HYPERTENSION
     Dosage: 80MG/DAY
     Route: 048
     Dates: start: 20020401
  2. NORVASC [Suspect]
     Indication: HYPERTENSION
     Dosage: 5MG/DAY
     Route: 048
     Dates: start: 20020401
  3. SORTIS ^GOEDECKE^ [Concomitant]
     Dosage: 20MG/DAY
     Route: 048
     Dates: start: 20020101
  4. ACETYLSALICYLIC ACID [Concomitant]
     Route: 048
     Dates: start: 20020101

REACTIONS (4)
  - BLOOD PRESSURE INADEQUATELY CONTROLLED [None]
  - CATARACT [None]
  - CONCOMITANT DISEASE PROGRESSION [None]
  - VISUAL ACUITY REDUCED [None]
